FAERS Safety Report 7821172-2 (Version None)
Quarter: 2011Q4

REPORT INFORMATION
  Report Type: 
  Country: None (occurrence: None)
  Receive Date: 20111018
  Receipt Date: 20110217
  Transmission Date: 20120403
  Serious: No
  Sender: FDA-Public Use
  Company Number: US-ASTRAZENECA-2011SE09250

PATIENT
  Age: 54 Year
  Sex: Female
  Weight: 67.6 kg

DRUGS (4)
  1. SYMBICORT [Suspect]
     Dosage: 80/4.5,  2 PUFFS TWO TIMES A DAY
     Route: 055
     Dates: start: 20110211, end: 20110213
  2. VENTALIN HFA [Concomitant]
  3. BROMOCRIPTINE MESYLATE [Concomitant]
  4. ADVAIR DISKUS 100/50 [Concomitant]

REACTIONS (2)
  - CHEST PAIN [None]
  - PNEUMONIA [None]
